FAERS Safety Report 6032637-0 (Version None)
Quarter: 2008Q4

REPORT INFORMATION
  Report Type: 
  Country: None (occurrence: None)
  Receive Date: 20081224
  Receipt Date: 20081017
  Transmission Date: 20090506
  Serious: No
  Sender: FDA-Public Use
  Company Number: 2008PV036944

PATIENT
  Age: 58 Year
  Sex: Female

DRUGS (4)
  1. SYNLINPEN 120 (PRAMLINTIDE ACETATE) PEN-INJECTOR (1.0 MG/ML) [Suspect]
     Indication: TYPE 2 DIABETES MELLITUS
     Dosage: 60 MCG;QPM;SC; 60 MCG;BID;SC
     Route: 058
     Dates: start: 20081017, end: 20081001
  2. SYNLINPEN 120 (PRAMLINTIDE ACETATE) PEN-INJECTOR (1.0 MG/ML) [Suspect]
     Indication: TYPE 2 DIABETES MELLITUS
     Dosage: 60 MCG;QPM;SC; 60 MCG;BID;SC
     Route: 058
     Dates: start: 20081001
  3. HUMALOG MIX 75/25 [Concomitant]
  4. BACTRIM [Concomitant]

REACTIONS (2)
  - ABDOMINAL PAIN UPPER [None]
  - BLOOD GLUCOSE INCREASED [None]
